FAERS Safety Report 7268044-2 (Version None)
Quarter: 2011Q1

REPORT INFORMATION
  Report Type: 
  Country: None (occurrence: None)
  Receive Date: 20110201
  Receipt Date: 20110124
  Transmission Date: 20110831
  Serious: Yes (Other)
  Sender: FDA-Public Use
  Company Number: US-B.I. PHARMACEUTICALS,INC./RIDGEFIELD-2011-BP-01549BP

PATIENT
  Sex: Male

DRUGS (10)
  1. ASPIRIN [Concomitant]
     Indication: CARDIAC DISORDER
     Dosage: 162 MG
     Route: 048
  2. K-DUR [Concomitant]
     Indication: BLOOD POTASSIUM DECREASED
     Dosage: 10 MEQ
     Route: 048
  3. LASIX [Concomitant]
     Indication: FLUID RETENTION
  4. ZOCOR [Concomitant]
     Indication: PROPHYLAXIS
     Dosage: 40 MG
     Route: 048
  5. LASIX [Concomitant]
     Indication: JOINT SWELLING
     Dosage: 20 MG
     Route: 048
     Dates: start: 20060101
  6. DIGOXIN [Concomitant]
     Indication: CARDIAC DISORDER
     Dosage: 0.25 MG
     Route: 048
  7. FLOMAX [Suspect]
     Indication: PROSTATIC DISORDER
     Dosage: 0.4 MG
     Route: 048
     Dates: start: 20060101
  8. PRILOSEC [Concomitant]
     Indication: ABDOMINAL DISCOMFORT
     Dosage: 200 MG
     Route: 048
  9. JANUVIA [Concomitant]
     Indication: DIABETES MELLITUS
     Dosage: 100 MG
     Route: 048
  10. SYNTHROID [Concomitant]
     Indication: THYROID DISORDER
     Dosage: 150 MG
     Route: 048

REACTIONS (5)
  - PULMONARY FIBROSIS [None]
  - CONSTIPATION [None]
  - ABDOMINAL PAIN UPPER [None]
  - RESTLESS LEGS SYNDROME [None]
  - ATRIAL FIBRILLATION [None]
